FAERS Safety Report 7093100-1 (Version None)
Quarter: 2010Q4

REPORT INFORMATION
  Report Type: 
  Country: None (occurrence: None)
  Receive Date: 20101110
  Receipt Date: 20101105
  Transmission Date: 20110411
  Serious: Yes (Other)
  Sender: FDA-Public Use
  Company Number: US-BRISTOL-MYERS SQUIBB COMPANY-15370570

PATIENT

DRUGS (1)
  1. BARACLUDE [Suspect]
     Dosage: ON FOR 6 MONTHS,OFF FOR 2 MONTHS

REACTIONS (1)
  - DRUG RESISTANCE [None]
